FAERS Safety Report 11198071 (Version 3)
Quarter: 2015Q3

REPORT INFORMATION
  Report Type: Spontaneous
  Country: JP (occurrence: JP)
  Receive Date: 20150617
  Receipt Date: 20150805
  Transmission Date: 20151125
  Serious: Yes (Hospitalization)
  Sender: FDA-Public Use
  Company Number: JP-ROCHE-1595550

PATIENT
  Age: 53 Year
  Sex: Female

DRUGS (3)
  1. ACTEMRA [Suspect]
     Active Substance: TOCILIZUMAB
     Indication: RHEUMATOID ARTHRITIS
     Dosage: 80 MG/KG/4-5 WEEKS
     Route: 042
  2. METHOTREXATE [Concomitant]
     Active Substance: METHOTREXATE
     Dosage: DECREASED TO 10 MG/WEEK
     Route: 065
  3. PREDNISOLONE. [Concomitant]
     Active Substance: PREDNISOLONE
     Dosage: DECREASED TO 1 MG EVERY OTHER DAY.
     Route: 065

REACTIONS (1)
  - Gastrointestinal perforation [Recovered/Resolved]

NARRATIVE: CASE EVENT DATE: 20140912
